FAERS Safety Report 13130860 (Version 1)
Quarter: 2017Q1

REPORT INFORMATION
  Report Type: Spontaneous
  Country: US (occurrence: US)
  Receive Date: 20170118
  Receipt Date: 20170118
  Transmission Date: 20170428
  Serious: Yes (Hospitalization)
  Sender: FDA-Public Use
  Company Number: None

PATIENT
  Age: 84 Year
  Sex: Male
  Weight: 60.24 kg

DRUGS (2)
  1. PALBOCICLIB [Suspect]
     Active Substance: PALBOCICLIB
     Indication: SQUAMOUS CELL CARCINOMA OF HEAD AND NECK
     Dosage: QD DAYS 1-21
     Route: 048
     Dates: start: 20161109, end: 20170115
  2. CETUXIMAB. [Suspect]
     Active Substance: CETUXIMAB
     Indication: SQUAMOUS CELL CARCINOMA OF HEAD AND NECK
     Route: 042
     Dates: start: 20161109, end: 20170110

REACTIONS (8)
  - Thrombocytopenia [None]
  - Failure to thrive [None]
  - Drooling [None]
  - Dysphagia [None]
  - Drug dose omission [None]
  - Dyspnoea [None]
  - Dizziness [None]
  - Oesophageal disorder [None]

NARRATIVE: CASE EVENT DATE: 20170116
